FAERS Safety Report 9471051 (Version 2)
Quarter: 2013Q4

REPORT INFORMATION
  Report Type: Spontaneous
  Country: US (occurrence: US)
  Receive Date: 20130822
  Receipt Date: 20131119
  Transmission Date: 20140711
  Serious: Yes (Hospitalization)
  Sender: FDA-Public Use
  Company Number: US-GILEAD-2013-0081431

PATIENT
  Age: 78 Year
  Sex: Female
  Weight: 69.84 kg

DRUGS (11)
  1. RANEXA [Suspect]
     Indication: ANGINA PECTORIS
     Dosage: 500 MG, UNK
     Route: 048
     Dates: start: 20130731
  2. IMDUR [Concomitant]
     Indication: ANGINA PECTORIS
     Dosage: 30 MG, UNK
     Route: 048
  3. METOPROLOL [Concomitant]
     Indication: CORONARY ARTERY DISEASE
     Dosage: 100 MG, UNK
     Route: 048
  4. PLAVIX [Concomitant]
     Indication: ANTICOAGULANT THERAPY
     Dosage: 75 MG, UNK
     Route: 048
  5. AMLODIPINE [Concomitant]
     Indication: HYPERTENSION
     Dosage: 10 MG, UNK
     Route: 048
  6. COZAAR [Concomitant]
     Indication: HYPERTENSION
     Dosage: 100 MG, UNK
     Route: 048
  7. SYNTHROID [Concomitant]
     Indication: HYPOTHYROIDISM
     Dosage: 25 ?G, UNK
     Route: 048
  8. SYNTHROID [Concomitant]
     Dosage: 50 ?G, UNK
     Route: 048
  9. GLIMEPIRIDE [Concomitant]
     Indication: DIABETES MELLITUS
     Dosage: 4 MG, UNK
     Route: 048
  10. JANUVIA [Concomitant]
     Indication: DIABETES MELLITUS
     Dosage: 100 MG, UNK
     Route: 048
  11. MAGNESIUM OXIDE [Concomitant]
     Indication: SUPPLEMENTATION THERAPY
     Dosage: 400 MG, UNK
     Route: 048

REACTIONS (4)
  - Chest pain [Unknown]
  - Chest pain [Unknown]
  - Abdominal pain upper [Unknown]
  - Abdominal pain upper [Unknown]
